FAERS Safety Report 7397479-2 (Version None)
Quarter: 2011Q2

REPORT INFORMATION
  Report Type: 
  Country: None (occurrence: None)
  Receive Date: 20110406
  Receipt Date: 20110324
  Transmission Date: 20111010
  Serious: Yes (Other)
  Sender: FDA-Public Use
  Company Number: PHHY2010BE79513

PATIENT
  Age: 70 Year
  Sex: Female

DRUGS (2)
  1. ANTIDEPRESSANTS [Suspect]
  2. EXJADE [Suspect]
     Indication: MYELODYSPLASTIC SYNDROME
     Route: 048

REACTIONS (2)
  - HAEMATOTOXICITY [None]
  - PANCYTOPENIA [None]
